FAERS Safety Report 22517044 (Version 1)
Quarter: 2023Q2

REPORT INFORMATION
  Report Type: Spontaneous
  Country: NL (occurrence: NL)
  Receive Date: 20230603
  Receipt Date: 20230603
  Transmission Date: 20230722
  Serious: Yes (Life-Threatening, Other)
  Sender: FDA-Public Use
  Company Number: NL-LRB-00881883

PATIENT
  Sex: Female
  Weight: 84 kg

DRUGS (1)
  1. AMITRIPTYLINE [Suspect]
     Active Substance: AMITRIPTYLINE
     Indication: Pain
     Dosage: 10 MILLIGRAM, ONCE A DAY (1X P D 1 ST) (GENEESMIDDEL VOORGESCHREVEN DOOR ARTS: JA)
     Route: 065
     Dates: start: 20200112, end: 20200120

REACTIONS (4)
  - Hallucination [Recovered/Resolved]
  - Derealisation [Recovered/Resolved]
  - Psychomotor hyperactivity [Recovered/Resolved]
  - Psychotic disorder [Recovered/Resolved]
